FAERS Safety Report 19278541 (Version 1)
Quarter: 2021Q2

REPORT INFORMATION
  Report Type: Spontaneous
  Country: US (occurrence: US)
  Receive Date: 20210520
  Receipt Date: 20210520
  Transmission Date: 20210717
  Serious: No
  Sender: FDA-Public Use
  Company Number: US-CELLTRION INC.-2021US004684

PATIENT

DRUGS (1)
  1. TRUXIMA [Suspect]
     Active Substance: RITUXIMAB-ABBS
     Indication: DERMATITIS HERPETIFORMIS
     Dosage: 1000 MG 1 AND 15 EVERY 6 MONTHS
     Dates: start: 20210401

REACTIONS (1)
  - Off label use [Unknown]
